FAERS Safety Report 8522133-0 (Version None)
Quarter: 2012Q3

REPORT INFORMATION
  Report Type: 
  Country: None (occurrence: None)
  Receive Date: 20120709
  Receipt Date: 20120618
  Transmission Date: 20120928
  Serious: Yes (Hospitalization)
  Sender: FDA-Public Use
  Company Number: JPI-P-015711

PATIENT
  Age: 31 Year
  Sex: Male
  Weight: 112 kg

DRUGS (2)
  1. XYREM [Suspect]
     Indication: CATAPLEXY
     Dosage: (6 GM),ORAL
     Route: 048
     Dates: start: 20110301
  2. MODAFINIL [Concomitant]

REACTIONS (5)
  - DYSPNOEA [None]
  - MYALGIA [None]
  - NARCOLEPSY [None]
  - BLOOD PRESSURE INCREASED [None]
  - TETANY [None]
